FAERS Safety Report 12423071 (Version 1)
Quarter: 2016Q2

REPORT INFORMATION
  Report Type: Spontaneous
  Country: US (occurrence: None)
  Receive Date: 20160531
  Receipt Date: 20160531
  Transmission Date: 20160815
  Serious: Yes (Other)
  Sender: FDA-Public Use
  Company Number: None

PATIENT
  Age: 67 Year
  Sex: Male
  Weight: 75.75 kg

DRUGS (10)
  1. HCTZ 25MG/LOSARTAN 100MG [Concomitant]
  2. MULTIVITAMIN [Concomitant]
     Active Substance: VITAMINS
  3. ASPIRIN. [Concomitant]
     Active Substance: ASPIRIN
  4. FISH OIL [Concomitant]
     Active Substance: FISH OIL
  5. CIPROFLOXACIN HCL, 500 MG BAYER [Suspect]
     Active Substance: CIPROFLOXACIN HYDROCHLORIDE
     Indication: PROSTATIC SPECIFIC ANTIGEN INCREASED
     Route: 048
     Dates: start: 20160508, end: 20160512
  6. LINAGLIPTIN [Concomitant]
     Active Substance: LINAGLIPTIN
  7. METFORMIN HCL [Concomitant]
     Active Substance: METFORMIN HYDROCHLORIDE
  8. MAGNESIUM [Concomitant]
     Active Substance: MAGNESIUM
  9. CALCIUM [Concomitant]
     Active Substance: CALCIUM
  10. COQ 10 [Concomitant]
     Active Substance: UBIDECARENONE

REACTIONS (3)
  - Pain in extremity [None]
  - Sunburn [None]
  - Tendon pain [None]

NARRATIVE: CASE EVENT DATE: 20160512
